FAERS Safety Report 5288099-4 (Version None)
Quarter: 2007Q1

REPORT INFORMATION
  Report Type: 
  Country: None (occurrence: None)
  Receive Date: 20070116
  Receipt Date: 20061016
  Transmission Date: 20070707
  Serious: No
  Sender: FDA-Public Use
  Company Number: 2006SP003741

PATIENT
  Age: 60 Year
  Sex: Female
  Weight: 68.0396 kg

DRUGS (5)
  1. LUNESTA [Suspect]
     Indication: INSOMNIA
     Dosage: 3MG, 1X; ORAL
     Route: 048
     Dates: start: 20060720, end: 20060720
  2. PHENYTOIN SODIUM [Concomitant]
  3. PHENOBARBITAL TAB [Concomitant]
  4. VITAMIN CAP [Concomitant]
  5. XANAX [Concomitant]

REACTIONS (4)
  - DYSGEUSIA [None]
  - HEADACHE [None]
  - PARADOXICAL DRUG REACTION [None]
  - TINNITUS [None]
